FAERS Safety Report 5472403-8 (Version None)
Quarter: 2007Q3

REPORT INFORMATION
  Report Type: 
  Country: None (occurrence: None)
  Receive Date: 20070926
  Receipt Date: 20070912
  Transmission Date: 20080115
  Serious: Yes (Hospitalization)
  Sender: FDA-Public Use
  Company Number: 02100-EUR-07-0121

PATIENT
  Age: 69 Year
  Sex: Male

DRUGS (3)
  1. CILOSTAZOL [Suspect]
     Indication: ARTERIAL OCCLUSIVE DISEASE
     Dosage: 100 MG ORAL
     Route: 048
     Dates: end: 20070819
  2. INSULIN HUMAN [Concomitant]
  3. INSULIN LISPRO [Concomitant]

REACTIONS (1)
  - CHOLESTASIS [None]
